FAERS Safety Report 9786123 (Version 2)
Quarter: 2014Q1

REPORT INFORMATION
  Report Type: Spontaneous
  Country: DE (occurrence: DE)
  Receive Date: 20131227
  Receipt Date: 20140107
  Transmission Date: 20141002
  Serious: Yes (Congenital Anomaly, Other)
  Sender: FDA-Public Use
  Company Number: DE-GILEAD-2013-0090615

PATIENT
  Sex: Female
  Weight: 180 kg

DRUGS (1)
  1. TRUVADA [Suspect]
     Indication: HIV INFECTION
     Route: 064

REACTIONS (11)
  - Ultrasound scan abnormal [Not Recovered/Not Resolved]
  - Congenital anomaly [Not Recovered/Not Resolved]
  - Hygroma colli [Not Recovered/Not Resolved]
  - Micrognathia [Not Recovered/Not Resolved]
  - Retrognathia [Not Recovered/Not Resolved]
  - Ventricular septal defect [Not Recovered/Not Resolved]
  - Dysplasia [Not Recovered/Not Resolved]
  - Anomaly of external ear congenital [Not Recovered/Not Resolved]
  - Ear malformation [Not Recovered/Not Resolved]
  - Brain malformation [Not Recovered/Not Resolved]
  - Congenital spinal cord anomaly [Not Recovered/Not Resolved]
